FAERS Safety Report 7912397-6 (Version None)
Quarter: 2011Q4

REPORT INFORMATION
  Report Type: 
  Country: None (occurrence: None)
  Receive Date: 20111114
  Receipt Date: 20111103
  Transmission Date: 20120403
  Serious: Yes (Hospitalization)
  Sender: FDA-Public Use
  Company Number: US-BAYER-2011-013555

PATIENT
  Age: 46 Year
  Sex: Female
  Weight: 82.993 kg

DRUGS (5)
  1. YASMIN [Suspect]
     Indication: UTERINE LEIOMYOMA
     Dosage: UNK
     Dates: start: 20031101, end: 20070301
  2. MOTRIN [Concomitant]
  3. YAZ [Suspect]
     Indication: UTERINE LEIOMYOMA
     Dosage: UNK
     Dates: start: 20070701, end: 20090201
  4. YAZ [Suspect]
     Indication: MENORRHAGIA
  5. YASMIN [Suspect]
     Indication: MENORRHAGIA

REACTIONS (7)
  - PULMONARY EMBOLISM [None]
  - INJURY [None]
  - PAIN [None]
  - DEEP VEIN THROMBOSIS [None]
  - PSYCHOLOGICAL TRAUMA [None]
  - ANXIETY [None]
  - EMOTIONAL DISTRESS [None]
